FAERS Safety Report 20424003 (Version 1)
Quarter: 2022Q1

REPORT INFORMATION
  Report Type: Report from Study
  Country: GB (occurrence: GB)
  Receive Date: 20220203
  Receipt Date: 20220203
  Transmission Date: 20220423
  Serious: Yes (Other)
  Sender: FDA-Public Use
  Company Number: GB-EXELIXIS-CABO-21036839

PATIENT
  Age: 22 Year
  Sex: Male

DRUGS (4)
  1. CABOMETYX [Suspect]
     Active Substance: CABOZANTINIB S-MALATE
     Indication: Desmoplastic small round cell tumour
     Dosage: 60 MG, QD
     Route: 048
  2. DALTEPARIN [Concomitant]
     Active Substance: DALTEPARIN
  3. MORPHINE SULFATE [Concomitant]
     Active Substance: MORPHINE SULFATE
  4. OMEPRAZOLE [Concomitant]
     Active Substance: OMEPRAZOLE
     Dosage: UNK

REACTIONS (3)
  - Malignant neoplasm progression [Not Recovered/Not Resolved]
  - Gastric ulcer [Not Recovered/Not Resolved]
  - Off label use [Unknown]

NARRATIVE: CASE EVENT DATE: 20210709
